FAERS Safety Report 4734478-0 (Version None)
Quarter: 2005Q3

REPORT INFORMATION
  Report Type: 
  Country: None (occurrence: None)
  Receive Date: 20050721
  Receipt Date: 20050418
  Transmission Date: 20060218
  Serious: No
  Sender: FDA-Public Use
  Company Number: 2005SP000238

PATIENT
  Age: 66 Year
  Sex: Male
  Weight: 74.3899 kg

DRUGS (9)
  1. LUNESTA [Suspect]
     Indication: INSOMNIA
     Dosage: 2 MG; HS; ORAL; SEE IMAGE
     Dates: start: 20050401, end: 20050401
  2. LUNESTA [Suspect]
     Indication: INSOMNIA
     Dosage: 2 MG; HS; ORAL; SEE IMAGE
     Dates: start: 20050401, end: 20050401
  3. LUNESTA [Suspect]
     Indication: INSOMNIA
     Dosage: 2 MG; HS; ORAL; SEE IMAGE
     Dates: start: 20050405, end: 20050401
  4. SEROQUEL [Concomitant]
  5. NEURONTIN [Concomitant]
  6. REMERON [Concomitant]
  7. TRAZODONE [Concomitant]
  8. SEROQUEL [Concomitant]
  9. CLONAZEPAM [Concomitant]

REACTIONS (5)
  - ABNORMAL DREAMS [None]
  - DRUG INEFFECTIVE [None]
  - FATIGUE [None]
  - HANGOVER [None]
  - INSOMNIA [None]
